FAERS Safety Report 20381070 (Version 1)
Quarter: 2022Q1

REPORT INFORMATION
  Report Type: Spontaneous
  Country: JP (occurrence: JP)
  Receive Date: 20220127
  Receipt Date: 20220127
  Transmission Date: 20220424
  Serious: Yes (Hospitalization, Disabling, Other)
  Sender: FDA-Public Use
  Company Number: JP-BAYER-2021A253793

PATIENT

DRUGS (6)
  1. EYLEA [Suspect]
     Active Substance: AFLIBERCEPT
     Indication: Diabetic retinal oedema
     Dosage: 2 MG, ONCE (RIGHT EYE)
     Route: 031
     Dates: start: 20190402, end: 20190402
  2. EYLEA [Suspect]
     Active Substance: AFLIBERCEPT
     Dosage: 2 MG, ONCE (LEFT EYE)
     Route: 031
     Dates: start: 20190409, end: 20190409
  3. EYLEA [Suspect]
     Active Substance: AFLIBERCEPT
     Dosage: 2 MG, ONCE (LEFT EYE)
     Route: 031
     Dates: start: 20190926, end: 20190926
  4. EYLEA [Suspect]
     Active Substance: AFLIBERCEPT
     Dosage: 2 MG, ONCE (LEFT EYE)
     Route: 031
     Dates: start: 20200116, end: 20200116
  5. EYLEA [Suspect]
     Active Substance: AFLIBERCEPT
     Dosage: 2 MG, ONCE (LEFT EYE)
     Route: 031
     Dates: start: 20211111, end: 20211111
  6. FML [Concomitant]
     Active Substance: FLUOROMETHOLONE
     Indication: Conjunctivitis allergic
     Dosage: BOTH EYES
     Route: 047
     Dates: start: 20181225

REACTIONS (3)
  - Lacunar infarction [Recovered/Resolved with Sequelae]
  - Monoplegia [Unknown]
  - Hemiparesis [Recovered/Resolved with Sequelae]

NARRATIVE: CASE EVENT DATE: 20211113
